FAERS Safety Report 16689150 (Version 1)
Quarter: 2019Q3

REPORT INFORMATION
  Report Type: Report from Study
  Country: RU (occurrence: RU)
  Receive Date: 20190809
  Receipt Date: 20190809
  Transmission Date: 20191004
  Serious: Yes (Other)
  Sender: FDA-Public Use
  Company Number: RU-ASTRAZENECA-2019SF12256

PATIENT
  Age: 66 Year
  Sex: Female
  Weight: 75 kg

DRUGS (6)
  1. ISOPTIN [Concomitant]
     Active Substance: VERAPAMIL HYDROCHLORIDE
  2. BRILINTA [Suspect]
     Active Substance: TICAGRELOR
     Indication: MYOCARDIAL INFARCTION
     Route: 048
     Dates: start: 201812
  3. NOLIPREL [INDAPAMIDE/PERINDOPRIL] [Suspect]
     Active Substance: INDAPAMIDE\PERINDOPRIL
     Route: 065
  4. ASK [Concomitant]
  5. BRILINTA [Suspect]
     Active Substance: TICAGRELOR
     Indication: STENT PLACEMENT
     Route: 048
     Dates: start: 201812
  6. XARELTO [Concomitant]
     Active Substance: RIVAROXABAN

REACTIONS (9)
  - Pharyngeal swelling [Recovered/Resolved]
  - Blood pressure decreased [Recovered/Resolved]
  - Vein rupture [Recovered/Resolved]
  - Salivary hypersecretion [Recovered/Resolved]
  - Throat irritation [Recovered/Resolved]
  - Pain [Recovered/Resolved]
  - Vomiting [Recovered/Resolved]
  - Haemorrhage [Recovered/Resolved]
  - Contusion [Recovered/Resolved]
